FAERS Safety Report 7307653-9 (Version None)
Quarter: 2011Q1

REPORT INFORMATION
  Report Type: 
  Country: None (occurrence: None)
  Receive Date: 20110223
  Receipt Date: 20110215
  Transmission Date: 20110831
  Serious: Yes (Other)
  Sender: FDA-Public Use
  Company Number: US-PFIZER INC-2011032741

PATIENT
  Age: 50 Year
  Sex: Male

DRUGS (9)
  1. CYTARABINE [Suspect]
     Indication: T-CELL TYPE ACUTE LEUKAEMIA
  2. RITUXIMAB [Suspect]
     Indication: T-CELL TYPE ACUTE LEUKAEMIA
  3. ACYCLOVIR [Concomitant]
     Indication: PROPHYLAXIS
  4. VINCRISTINE [Suspect]
     Indication: T-CELL TYPE ACUTE LEUKAEMIA
  5. DOXORUBICIN HCL [Suspect]
     Indication: T-CELL TYPE ACUTE LEUKAEMIA
  6. CYCLOPHOSPHAMIDE [Suspect]
     Indication: T-CELL TYPE ACUTE LEUKAEMIA
  7. CIPROFLOXACIN [Concomitant]
     Indication: PROPHYLAXIS
  8. DEXAMETHASONE [Suspect]
     Indication: T-CELL TYPE ACUTE LEUKAEMIA
  9. FLUCONAZOLE [Concomitant]
     Indication: PROPHYLAXIS

REACTIONS (1)
  - CYTOMEGALOVIRUS CHORIORETINITIS [None]
